FAERS Safety Report 23670289 (Version 1)
Quarter: 2024Q1

REPORT INFORMATION
  Report Type: Spontaneous
  Country: IT (occurrence: IT)
  Receive Date: 20240325
  Receipt Date: 20240325
  Transmission Date: 20240410
  Serious: Yes (Other)
  Sender: FDA-Public Use
  Company Number: IT-BoehringerIngelheim-2024-BI-016162

PATIENT
  Age: 81 Year
  Sex: Male

DRUGS (1)
  1. DABIGATRAN [Suspect]
     Active Substance: DABIGATRAN
     Indication: Myocardial ischaemia
     Route: 048

REACTIONS (6)
  - Odontogenic cyst [Recovered/Resolved]
  - Mouth haemorrhage [Recovered/Resolved]
  - Thrombosis [Recovered/Resolved]
  - Intentional product use issue [Unknown]
  - Tooth impacted [Recovered/Resolved]
  - Oral disorder [Recovered/Resolved]
